FAERS Safety Report 6342370-3 (Version None)
Quarter: 2009Q3

REPORT INFORMATION
  Report Type: 
  Country: None (occurrence: None)
  Receive Date: 20090908
  Receipt Date: 20070905
  Transmission Date: 20100115
  Serious: Yes (Other)
  Sender: FDA-Public Use
  Company Number: US-ASTRAZENECA-2006UW11918

PATIENT
  Age: 19001 Day
  Sex: Female
  Weight: 91.6 kg

DRUGS (9)
  1. SEROQUEL [Suspect]
     Indication: BIPOLAR DISORDER
     Dosage: 200-900 MG
     Route: 048
     Dates: start: 20020808
  2. SEROQUEL [Suspect]
     Indication: DEPRESSION
     Dosage: 200-900 MG
     Route: 048
     Dates: start: 20020808
  3. SEROQUEL [Suspect]
     Route: 048
     Dates: start: 20040415, end: 20061101
  4. SEROQUEL [Suspect]
     Route: 048
     Dates: start: 20040415, end: 20061101
  5. RISPERDAL [Concomitant]
     Dates: start: 20060101
  6. LOPRESSOR [Concomitant]
     Route: 048
     Dates: start: 20050119
  7. ZESTRIL [Concomitant]
     Route: 048
     Dates: start: 20020929
  8. NEURONTIN [Concomitant]
     Route: 048
     Dates: start: 20040816
  9. NORVASC [Concomitant]
     Route: 048
     Dates: start: 20040903

REACTIONS (2)
  - DIABETES MELLITUS [None]
  - DIABETIC NEUROPATHY [None]
